FAERS Safety Report 5934657-0 (Version None)
Quarter: 2008Q4

REPORT INFORMATION
  Report Type: 
  Country: None (occurrence: None)
  Receive Date: 20081029
  Receipt Date: 20081024
  Transmission Date: 20090506
  Serious: Yes (Hospitalization)
  Sender: FDA-Public Use
  Company Number: ES-GENENTECH-269808

PATIENT
  Age: 45 Year
  Sex: Male

DRUGS (1)
  1. RAPTIVA [Suspect]
     Indication: PSORIASIS
     Dosage: UNK
     Route: 058
     Dates: start: 20080731, end: 20080812

REACTIONS (2)
  - INFLUENZA LIKE ILLNESS [None]
  - SUPRAVENTRICULAR TACHYCARDIA [None]
